FAERS Safety Report 5840110-5 (Version None)
Quarter: 2008Q3

REPORT INFORMATION
  Report Type: 
  Country: None (occurrence: None)
  Receive Date: 20080811
  Receipt Date: 20080805
  Transmission Date: 20090109
  Serious: Yes (Disabling)
  Sender: FDA-Public Use
  Company Number: B0532554A

PATIENT
  Age: 45 Year
  Sex: Female

DRUGS (4)
  1. FLUTICASONE PROPIONATE [Suspect]
     Indication: CHRONIC SINUSITIS
     Route: 045
     Dates: start: 20050101
  2. FEXOFENADINE [Concomitant]
     Route: 048
     Dates: start: 20060101
  3. SERETIDE [Concomitant]
     Indication: ASTHMA
     Route: 055
     Dates: start: 20060101
  4. OMEPRAZOLE [Concomitant]
     Route: 048
     Dates: start: 20060101

REACTIONS (2)
  - CATARACT [None]
  - VISUAL ACUITY REDUCED [None]
